FAERS Safety Report 23487271 (Version 2)
Quarter: 2025Q1

REPORT INFORMATION
  Report Type: Spontaneous
  Country: JP (occurrence: JP)
  Receive Date: 20240206
  Receipt Date: 20250321
  Transmission Date: 20250409
  Serious: Yes (Other)
  Sender: NX DEVELOPMENT CORPORATION
  Company Number: JP-sbiph-S000172010P

PATIENT
  Age: 67 Year
  Sex: Male

DRUGS (6)
  1. AMINOLEVULINIC ACID HYDROCHLORIDE [Suspect]
     Active Substance: AMINOLEVULINIC ACID HYDROCHLORIDE
     Indication: Bladder transitional cell carcinoma
     Route: 048
     Dates: start: 20231226, end: 20231226
  2. ATENOLOL [Concomitant]
     Active Substance: ATENOLOL
  3. HALCION [Concomitant]
     Active Substance: TRIAZOLAM
  4. CLOTIAZEPAM [Concomitant]
     Active Substance: CLOTIAZEPAM
  5. TAMSULOSIN [Concomitant]
     Active Substance: TAMSULOSIN
  6. tsumura [Concomitant]

REACTIONS (3)
  - Hypotension [Recovered/Resolved]
  - Tachycardia [Unknown]
  - Atrial fibrillation [Recovered/Resolved]

NARRATIVE: CASE EVENT DATE: 20231226
